FAERS Safety Report 5581143-6 (Version None)
Quarter: 2007Q4

REPORT INFORMATION
  Report Type: 
  Country: None (occurrence: None)
  Receive Date: 20071227
  Receipt Date: 20071217
  Transmission Date: 20080405
  Serious: Yes (Hospitalization, Other)
  Sender: FDA-Public Use
  Company Number: S07-CAN-00980-01

PATIENT
  Age: 33 Year
  Sex: Female
  Weight: 73 kg

DRUGS (2)
  1. CERVIDIL [Suspect]
     Dosage: 10 MG ONCE VG
     Route: 067
     Dates: start: 20070212, end: 20070213
  2. CERVIDIL [Suspect]
     Dosage: 10 MG ONCE VG
     Route: 067
     Dates: start: 20070211, end: 20070212

REACTIONS (2)
  - DRUG EXPOSURE DURING PREGNANCY [None]
  - PREMATURE SEPARATION OF PLACENTA [None]
